FAERS Safety Report 6784521-2 (Version None)
Quarter: 2010Q2

REPORT INFORMATION
  Report Type: 
  Country: None (occurrence: None)
  Receive Date: 20100622
  Receipt Date: 20100615
  Transmission Date: 20101027
  Serious: Yes (Other)
  Sender: FDA-Public Use
  Company Number: ZA-GENZYME-CERZ-1001348

PATIENT

DRUGS (2)
  1. CEREZYME [Suspect]
     Indication: GAUCHER'S DISEASE
     Dosage: 1000 U, Q2W
     Route: 042
  2. CEREZYME [Suspect]
     Dosage: 800 U, Q2W
     Route: 042
     Dates: start: 20091101

REACTIONS (1)
  - PATHOLOGICAL FRACTURE [None]
